FAERS Safety Report 14742928 (Version 2)
Quarter: 2018Q2

REPORT INFORMATION
  Report Type: Spontaneous
  Country: US (occurrence: US)
  Receive Date: 20180410
  Receipt Date: 20180502
  Transmission Date: 20180711
  Serious: Yes (Death, Hospitalization)
  Sender: FDA-Public Use
  Company Number: US-ACTELION-A-US2018-170329

PATIENT
  Age: 78 Year
  Sex: Female

DRUGS (1)
  1. OPSUMIT [Suspect]
     Active Substance: MACITENTAN
     Indication: PULMONARY ARTERIAL HYPERTENSION
     Dosage: 10 MG, QD
     Route: 048
     Dates: start: 20170228

REACTIONS (6)
  - Renal failure [Fatal]
  - Cardiac operation [Unknown]
  - Cardiac failure [Fatal]
  - Respiratory failure [Fatal]
  - Pneumonia [Unknown]
  - Mitral valve disease [Unknown]

NARRATIVE: CASE EVENT DATE: 20180302
